FAERS Safety Report 8576767-8 (Version None)
Quarter: 2012Q3

REPORT INFORMATION
  Report Type: 
  Country: None (occurrence: None)
  Receive Date: 20120807
  Receipt Date: 20120723
  Transmission Date: 20120928
  Serious: Yes (Other)
  Sender: FDA-Public Use
  Company Number: CA-WATSON-2012-13384

PATIENT
  Age: 67 Year
  Sex: Female

DRUGS (2)
  1. METRONIDAZOLE [Suspect]
     Dosage: 500 MG, SINGLE
     Route: 042
  2. METRONIDAZOLE [Suspect]
     Indication: BILIARY SEPSIS
     Dosage: 250 MG, SINGLE
     Route: 048

REACTIONS (1)
  - DRUG RASH WITH EOSINOPHILIA AND SYSTEMIC SYMPTOMS [None]
